FAERS Safety Report 10680042 (Version 3)
Quarter: 2015Q1

REPORT INFORMATION
  Report Type: Spontaneous
  Country: GB (occurrence: GB)
  Receive Date: 20141229
  Receipt Date: 20150220
  Transmission Date: 20150720
  Serious: Yes (Hospitalization, Disabling, Other)
  Sender: FDA-Public Use
  Company Number: GB-ENDO PHARMACEUTICALS INC.-AVEE20140372

PATIENT
  Age: 44 Year
  Sex: Male

DRUGS (3)
  1. AVEED [Suspect]
     Active Substance: TESTOSTERONE UNDECANOATE
     Route: 065
     Dates: start: 201209
  2. AVEED [Suspect]
     Active Substance: TESTOSTERONE UNDECANOATE
     Indication: PRODUCT USED FOR UNKNOWN INDICATION
     Route: 065
     Dates: start: 201112, end: 20120921
  3. VENLAFAXINE [Concomitant]
     Active Substance: VENLAFAXINE HYDROCHLORIDE
     Indication: PRODUCT USED FOR UNKNOWN INDICATION
     Route: 065
     Dates: start: 201202

REACTIONS (5)
  - Drug prescribing error [Recovered/Resolved]
  - Spinal fracture [Not Recovered/Not Resolved]
  - Seizure [Not Recovered/Not Resolved]
  - Myoclonic epilepsy [Not Recovered/Not Resolved]
  - Prescribed overdose [Recovered/Resolved]

NARRATIVE: CASE EVENT DATE: 201112
